FAERS Safety Report 26037735 (Version 1)
Quarter: 2025Q4

REPORT INFORMATION
  Report Type: Spontaneous
  Country: US (occurrence: US)
  Receive Date: 20251112
  Receipt Date: 20251112
  Transmission Date: 20260118
  Serious: No
  Sender: BRACCO
  Company Number: US-BRACCO-2024US06321

PATIENT
  Age: 52 Year
  Sex: Male

DRUGS (3)
  1. LUMASON [Suspect]
     Active Substance: SULFUR HEXAFLUORIDE
     Dosage: UNK UNK, SINGLE
  2. LUMASON [Suspect]
     Active Substance: SULFUR HEXAFLUORIDE
     Dosage: UNK UNK, SINGLE
  3. LUMASON [Suspect]
     Active Substance: SULFUR HEXAFLUORIDE
     Dosage: UNK UNK, SINGLE

REACTIONS (1)
  - Adverse event [Unknown]
